FAERS Safety Report 8433686-5 (Version None)
Quarter: 2012Q2

REPORT INFORMATION
  Report Type: 
  Country: None (occurrence: None)
  Receive Date: 20120613
  Receipt Date: 20120611
  Transmission Date: 20120825
  Serious: Yes (Hospitalization)
  Sender: FDA-Public Use
  Company Number: US-BAYER-2012-058436

PATIENT
  Sex: Female

DRUGS (4)
  1. KETOROLAC TROMETHAMINE [Concomitant]
  2. ZOFRAN [Concomitant]
  3. PEPCID [Concomitant]
  4. AVELOX [Suspect]
     Indication: PNEUMONIA
     Dosage: WAS ADMINISTERED OVER A 40 MINUTES TIME.
     Route: 042

REACTIONS (4)
  - HALLUCINATION [None]
  - FALL [None]
  - BLOOD IRON DECREASED [None]
  - HEART RATE INCREASED [None]
